FAERS Safety Report 19814295 (Version 1)
Quarter: 2021Q3

REPORT INFORMATION
  Report Type: Spontaneous
  Country: FR (occurrence: FR)
  Receive Date: 20210910
  Receipt Date: 20210910
  Transmission Date: 20211014
  Serious: Yes (Hospitalization)
  Sender: FDA-Public Use
  Company Number: FR-TEVA-2021-FR-1950276

PATIENT
  Age: 78 Year
  Sex: Female

DRUGS (1)
  1. RABEPRAZOLE BASE [Suspect]
     Active Substance: RABEPRAZOLE
     Indication: PROPHYLAXIS
     Route: 048

REACTIONS (6)
  - Wernicke^s encephalopathy [Not Recovered/Not Resolved]
  - Hypomagnesaemia [Not Recovered/Not Resolved]
  - Hypocalcaemia [Not Recovered/Not Resolved]
  - Encephalopathy [Not Recovered/Not Resolved]
  - Hypokalaemia [Not Recovered/Not Resolved]
  - Vomiting [Not Recovered/Not Resolved]

NARRATIVE: CASE EVENT DATE: 20210710
